FAERS Safety Report 20278487 (Version 1)
Quarter: 2022Q1

REPORT INFORMATION
  Report Type: Spontaneous
  Country: IL (occurrence: IL)
  Receive Date: 20220103
  Receipt Date: 20220103
  Transmission Date: 20220423
  Serious: Yes (Hospitalization, Other)
  Sender: FDA-Public Use
  Company Number: IL-BAYER-2021A275734

PATIENT
  Age: 86 Year
  Sex: Male

DRUGS (10)
  1. XARELTO [Suspect]
     Active Substance: RIVAROXABAN
     Indication: Atrial fibrillation
     Dosage: 20 MG, QD
     Route: 048
     Dates: start: 201606
  2. BISOPROLOL FUMARATE [Concomitant]
     Active Substance: BISOPROLOL FUMARATE
  3. COSOPT [Concomitant]
     Active Substance: DORZOLAMIDE HYDROCHLORIDE\TIMOLOL MALEATE
  4. FUROSEMIDE [Concomitant]
     Active Substance: FUROSEMIDE
  5. FOLIC ACID [Concomitant]
     Active Substance: FOLIC ACID
  6. NITROLINGUAL [Concomitant]
     Active Substance: NITROGLYCERIN
  7. OMEPRAZOLE [Concomitant]
     Active Substance: OMEPRAZOLE
  8. RAMIPRIL [Concomitant]
     Active Substance: RAMIPRIL
  9. SPIRONOLACTONE [Concomitant]
     Active Substance: SPIRONOLACTONE
  10. LIPTOR [ATORVASTATIN CALCIUM] [Concomitant]

REACTIONS (4)
  - Asthenia [Unknown]
  - Dyspnoea [Unknown]
  - Melaena [Unknown]
  - Haemoglobin decreased [Recovering/Resolving]

NARRATIVE: CASE EVENT DATE: 20211201
